FAERS Safety Report 8186481-9 (Version None)
Quarter: 2012Q1

REPORT INFORMATION
  Report Type: 
  Country: None (occurrence: None)
  Receive Date: 20120306
  Receipt Date: 20120227
  Transmission Date: 20120608
  Serious: Yes (Hospitalization, Other)
  Sender: FDA-Public Use
  Company Number: US-JNJFOC-20111111299

PATIENT
  Sex: Female
  Weight: 170.55 kg

DRUGS (2)
  1. STELARA [Suspect]
     Indication: PSORIASIS
     Route: 058
     Dates: start: 20110714
  2. STELARA [Suspect]
     Route: 058
     Dates: start: 20110415

REACTIONS (1)
  - BREAST CANCER [None]
